FAERS Safety Report 17061661 (Version 1)
Quarter: 2019Q4

REPORT INFORMATION
  Report Type: Spontaneous
  Country: GB (occurrence: GB)
  Receive Date: 20191121
  Receipt Date: 20191121
  Transmission Date: 20200122
  Serious: Yes (Disabling)
  Sender: FDA-Public Use
  Company Number: GB-PFIZER INC-2019502151

PATIENT
  Age: 20 Year
  Sex: Female
  Weight: 64 kg

DRUGS (1)
  1. LYRICA [Suspect]
     Active Substance: PREGABALIN
     Indication: PAIN
     Dosage: 150-900 MG DAILY
     Route: 048
     Dates: start: 20121001, end: 20180530

REACTIONS (7)
  - Overdose [Unknown]
  - Drug ineffective [Unknown]
  - Dependence [Not Recovered/Not Resolved]
  - Anxiety [Unknown]
  - Suicidal ideation [Not Recovered/Not Resolved]
  - Major depression [Not Recovered/Not Resolved]
  - Amnesia [Not Recovered/Not Resolved]
